FAERS Safety Report 5672271-5 (Version None)
Quarter: 2008Q1

REPORT INFORMATION
  Report Type: 
  Country: None (occurrence: None)
  Receive Date: 20080317
  Receipt Date: 20080313
  Transmission Date: 20080703
  Serious: Yes (Life-Threatening, Other)
  Sender: FDA-Public Use
  Company Number: 2008SP002561

PATIENT
  Age: 62 Year
  Sex: Male
  Weight: 96.6162 kg

DRUGS (6)
  1. PROVENTIL-HFA [Suspect]
     Indication: DRUG USE FOR UNKNOWN INDICATION
     Route: 055
     Dates: start: 20080116, end: 20080118
  2. ALLEGRA [Concomitant]
  3. VITAMINS [Concomitant]
  4. PROTONIX [Concomitant]
  5. NAPROSYN [Concomitant]
  6. CEFZIL [Concomitant]

REACTIONS (5)
  - COUGH [None]
  - DISORIENTATION [None]
  - INCOHERENT [None]
  - PRESYNCOPE [None]
  - SYNCOPE [None]
